FAERS Safety Report 7647825-7 (Version None)
Quarter: 2011Q3

REPORT INFORMATION
  Report Type: 
  Country: None (occurrence: None)
  Receive Date: 20110801
  Receipt Date: 20110725
  Transmission Date: 20111222
  Serious: Yes (Death, Hospitalization)
  Sender: FDA-Public Use
  Company Number: FR-CELGENEUS-056-C5013-10071932

PATIENT
  Sex: Female
  Weight: 52 kg

DRUGS (11)
  1. RAMIPRIL [Concomitant]
     Route: 048
     Dates: start: 19910101
  2. RISEDRONATE SODIUM [Concomitant]
     Indication: OSTEOPOROSIS
     Route: 065
     Dates: start: 20070401
  3. PHLEBOGEL [Concomitant]
     Route: 061
     Dates: start: 20071011
  4. XALATAN [Concomitant]
     Route: 061
     Dates: start: 20070917
  5. BETAMETHASONE [Concomitant]
     Route: 061
     Dates: start: 20081015
  6. CALCIUM CARBONATE W/COLECALCIFEROL [Concomitant]
     Indication: OSTEOPOROSIS
     Route: 048
     Dates: start: 20060420
  7. MORPHINE SULFATE [Concomitant]
     Route: 048
     Dates: start: 20060313
  8. ACETAMINOPHEN [Concomitant]
     Route: 048
  9. LACRIFLUID [Concomitant]
     Route: 061
     Dates: start: 20070217
  10. LENALIDOMIDE [Suspect]
     Dosage: 2.5 MILLIGRAM
     Route: 048
     Dates: start: 20060113, end: 20090112
  11. DIOSMINE [Concomitant]
     Indication: VENOUS INSUFFICIENCY
     Route: 048
     Dates: start: 19890101

REACTIONS (2)
  - MYELODYSPLASTIC SYNDROME TRANSFORMATION [None]
  - ACUTE MYELOID LEUKAEMIA [None]
